FAERS Safety Report 26112283 (Version 1)
Quarter: 2025Q4

REPORT INFORMATION
  Report Type: Report from Study
  Country: US (occurrence: None)
  Receive Date: 20251202
  Receipt Date: 20251202
  Transmission Date: 20260118
  Serious: Yes (Other)
  Sender: CHIESI
  Company Number: US-CHIESI-2025CHF02474

PATIENT
  Sex: Female
  Weight: 25.8 kg

DRUGS (1)
  1. BIRCH BARK\HERBALS [Suspect]
     Active Substance: BIRCH BARK\HERBALS
     Indication: Epidermolysis bullosa
     Dosage: UNK, PRN
     Dates: start: 20241112, end: 202506

REACTIONS (10)
  - Wound infection staphylococcal [Not Recovered/Not Resolved]
  - Wound infection bacterial [Recovering/Resolving]
  - Skin infection [Recovering/Resolving]
  - Wound secretion [Not Recovered/Not Resolved]
  - Wound complication [Not Recovered/Not Resolved]
  - Inflammation of wound [Recovering/Resolving]
  - Wound complication [Not Recovered/Not Resolved]
  - Wound infection [Recovered/Resolved]
  - Product complaint [Recovered/Resolved]
  - Product administration interrupted [Not Recovered/Not Resolved]

NARRATIVE: CASE EVENT DATE: 20250101
